FAERS Safety Report 6295904-1 (Version None)
Quarter: 2009Q3

REPORT INFORMATION
  Report Type: 
  Country: None (occurrence: None)
  Receive Date: 20090803
  Receipt Date: 20090803
  Transmission Date: 20100115
  Serious: Yes (Other)
  Sender: FDA-Public Use
  Company Number: None

PATIENT
  Age: 60 Year
  Sex: Female
  Weight: 93.441 kg

DRUGS (1)
  1. PREMARIN [Suspect]
     Indication: URETHRITIS NONINFECTIVE
     Dosage: 1 SMALL FINGERTIP DABL TWICE A WEEK TOP
     Route: 061
     Dates: start: 20090724, end: 20090724

REACTIONS (5)
  - BACK PAIN [None]
  - INSOMNIA [None]
  - MUSCLE TIGHTNESS [None]
  - NERVOUS SYSTEM DISORDER [None]
  - PAIN IN EXTREMITY [None]
